FAERS Safety Report 14121099 (Version 2)
Quarter: 2018Q4

REPORT INFORMATION
  Report Type: Report from Study
  Country: US (occurrence: US)
  Receive Date: 20171024
  Receipt Date: 20181005
  Transmission Date: 20190204
  Serious: No
  Sender: FDA-Public Use
  Company Number: US-SA-2017SA100582

PATIENT
  Age: 38 Year
  Sex: Male

DRUGS (2)
  1. VITAMIN D3 [Concomitant]
     Active Substance: CHOLECALCIFEROL
     Dosage: 2000 UNIT CAPSULE
     Route: 048
  2. LUMIZYME [Suspect]
     Active Substance: ALGLUCOSIDASE ALFA
     Indication: GLYCOGEN STORAGE DISEASE TYPE II
     Dosage: 20 MG/KG,QOW
     Route: 041
     Dates: start: 20170328

REACTIONS (4)
  - Blood immunoglobulin G increased [Not Recovered/Not Resolved]
  - Fatigue [Not Recovered/Not Resolved]
  - Restrictive pulmonary disease [Not Recovered/Not Resolved]
  - Pregnancy of partner [Unknown]

NARRATIVE: CASE EVENT DATE: 20170718
